FAERS Safety Report 6396570-7 (Version None)
Quarter: 2009Q4

REPORT INFORMATION
  Report Type: 
  Country: None (occurrence: None)
  Receive Date: 20091012
  Receipt Date: 20091006
  Transmission Date: 20100525
  Serious: Yes (Disabling)
  Sender: FDA-Public Use
  Company Number: BR-BAYER-200920585LA

PATIENT
  Age: 41 Year
  Sex: Female

DRUGS (4)
  1. BETAFERON [Suspect]
     Indication: MULTIPLE SCLEROSIS
     Dosage: BETAJECT
     Route: 058
     Dates: start: 20080101
  2. BACLOFEN [Concomitant]
     Indication: MUSCLE SPASMS
     Route: 048
     Dates: start: 20020101
  3. BUPROVIT [Concomitant]
     Indication: PREMEDICATION
     Dosage: TOTAL DAILY DOSE: 1200 MG
     Route: 048
     Dates: start: 20090701
  4. RETEMIC [Concomitant]
     Indication: URINARY INCONTINENCE
     Route: 048
     Dates: start: 20040101

REACTIONS (9)
  - ABASIA [None]
  - ANAEMIA [None]
  - ASTHENIA [None]
  - BEDRIDDEN [None]
  - MULTIPLE SCLEROSIS [None]
  - MULTIPLE SCLEROSIS RELAPSE [None]
  - MUSCULOSKELETAL STIFFNESS [None]
  - SPEECH DISORDER [None]
  - URINARY TRACT INFECTION [None]
